FAERS Safety Report 5849578-1 (Version None)
Quarter: 2008Q3

REPORT INFORMATION
  Report Type: 
  Country: None (occurrence: None)
  Receive Date: 20080819
  Receipt Date: 20080811
  Transmission Date: 20090109
  Serious: Yes (Hospitalization)
  Sender: FDA-Public Use
  Company Number: US-GILEAD-2008-0017583

PATIENT
  Sex: Male

DRUGS (11)
  1. LETAIRIS [Suspect]
     Indication: PULMONARY ARTERIAL HYPERTENSION
     Route: 048
     Dates: start: 20080716
  2. DEMADEX [Concomitant]
     Route: 048
  3. ZAROXOLYN [Concomitant]
     Route: 048
  4. VERAPAMIL [Concomitant]
     Route: 048
  5. ALBUTEROL [Concomitant]
     Route: 055
  6. ADVAIR DISKUS 100/50 [Concomitant]
     Dosage: 100/50
     Route: 055
  7. SPIRIVA [Concomitant]
     Route: 055
  8. ALLOPURINOL [Concomitant]
     Route: 048
  9. K-DUR [Concomitant]
     Route: 048
  10. NEXIUM [Concomitant]
     Route: 048
  11. MAG-OXIDE [Concomitant]
     Route: 048

REACTIONS (2)
  - ASTHENIA [None]
  - CARDIAC DISORDER [None]
